FAERS Safety Report 10234910 (Version 1)
Quarter: 2014Q2

REPORT INFORMATION
  Report Type: Spontaneous
  Country: US (occurrence: None)
  Receive Date: 20140520
  Receipt Date: 20140520
  Transmission Date: 20141212
  Serious: Yes (Hospitalization)
  Sender: FDA-Public Use
  Company Number: 2013PL000086

PATIENT
  Age: 59 Year
  Sex: Female
  Weight: 68.9 kg

DRUGS (11)
  1. AZATHIOPRINE (AZATHIOPRINE) [Suspect]
     Indication: CROHN^S DISEASE
     Dates: start: 20130125, end: 20130228
  2. HUMIRA (ADALIMUMAB) (SOLUTION FOR INJECTION) [Suspect]
     Indication: CROHN^S DISEASE
     Dosage: 40 MG, EVERY 2 WEEKS
     Route: 058
     Dates: start: 20130304
  3. VIVELLE (ESTRADIOL) [Concomitant]
  4. ESTRING (ESTRADIOL) [Concomitant]
  5. ATENOLOL (ATENOLOL) [Concomitant]
  6. NORVASC (AMLODIPINE BESILATE) [Concomitant]
  7. LIPOFEN (FENOFIBRATE) [Concomitant]
  8. PREDNISONE (PREDNISONE) [Concomitant]
  9. MULTIVITAMIN (ERGOCALCIFEROL,RETINOL,NICOTINAMIDE,ASCORBIC ACID,CALCIUM PANTOTHENATE,RIBOFLAVIN,PYRIDOXINE HYDROCHLORIDE,THIAMINE HYDROCHLORIDE) [Concomitant]
  10. VITAMIN D (ERGOCALCIFEROL) [Concomitant]
  11. VITAMIN B12 (CYANOCOBALAMIN) [Concomitant]

REACTIONS (4)
  - Crohn^s disease [None]
  - Intestinal obstruction [None]
  - Gastroenteritis salmonella [None]
  - Pancreatitis [None]
